FAERS Safety Report 6409899-0 (Version None)
Quarter: 2009Q4

REPORT INFORMATION
  Report Type: 
  Country: None (occurrence: None)
  Receive Date: 20091022
  Receipt Date: 20091001
  Transmission Date: 20100525
  Serious: Yes (Other)
  Sender: FDA-Public Use
  Company Number: US-BAYER-200935341GPV

PATIENT
  Age: 33 Year
  Sex: Female

DRUGS (3)
  1. ALEMTUZUMAB [Suspect]
     Indication: MULTIPLE SCLEROSIS
     Route: 042
     Dates: start: 20090629, end: 20090703
  2. IBUPROFEN [Concomitant]
     Dates: start: 20091001
  3. OMEPRAZOLE [Concomitant]
     Dates: start: 20091001

REACTIONS (1)
  - VASCULITIS [None]
